FAERS Safety Report 9758989 (Version 1)
Quarter: 2013Q4

REPORT INFORMATION
  Report Type: Spontaneous
  Country: US (occurrence: None)
  Receive Date: 20131216
  Receipt Date: 20131216
  Transmission Date: 20140711
  Serious: Yes (Other)
  Sender: FDA-Public Use
  Company Number: 163-21880-12010197(0)

PATIENT
  Age: 89 Year
  Sex: Male

DRUGS (1)
  1. REVLIMID (LENALIDOMIDE) (CAPSULES) [Suspect]
     Indication: MYELODYSPLASTIC SYNDROME
     Dosage: 10 MG, PO?5 MG, 3 WKS ON 1 WK OFF, PO? ?

REACTIONS (4)
  - Pneumonia [None]
  - Sinusitis [None]
  - Epistaxis [None]
  - Asthenia [None]
